FAERS Safety Report 7889640-5 (Version None)
Quarter: 2011Q4

REPORT INFORMATION
  Report Type: 
  Country: None (occurrence: None)
  Receive Date: 20111103
  Receipt Date: 20111103
  Transmission Date: 20120403
  Serious: Yes (Hospitalization)
  Sender: FDA-Public Use
  Company Number: TR-BAYER-2011-106423

PATIENT
  Age: 20 Year
  Sex: Female

DRUGS (1)
  1. NAPROXEN SODIUM [Suspect]
     Indication: DYSMENORRHOEA

REACTIONS (10)
  - EOSINOPHILIA [None]
  - PROLONGED EXPIRATION [None]
  - WHEEZING [None]
  - CHEST PAIN [None]
  - KOUNIS SYNDROME [None]
  - VOMITING [None]
  - GENERALISED ERYTHEMA [None]
  - URTICARIA [None]
  - NAUSEA [None]
  - DYSPNOEA [None]
